FAERS Safety Report 7328207-4 (Version None)
Quarter: 2011Q1

REPORT INFORMATION
  Report Type: 
  Country: None (occurrence: None)
  Receive Date: 20110303
  Receipt Date: 20110226
  Transmission Date: 20110831
  Serious: Yes (Death)
  Sender: FDA-Public Use
  Company Number: PHHY2011IN16221

PATIENT

DRUGS (2)
  1. FEMARA [Suspect]
     Indication: BREAST CANCER
     Dosage: 2.5 MG, UNK
     Route: 048
  2. CHEMOTHERAPEUTICS NOS [Concomitant]

REACTIONS (2)
  - HEPATIC FAILURE [None]
  - RESPIRATORY ARREST [None]
